FAERS Safety Report 4645912-9 (Version None)
Quarter: 2005Q2

REPORT INFORMATION
  Report Type: 
  Country: None (occurrence: None)
  Receive Date: 20050425
  Receipt Date: 20050407
  Transmission Date: 20051028
  Serious: Yes (Hospitalization, Other)
  Sender: FDA-Public Use
  Company Number: CA-2005-004433

PATIENT
  Age: 60 Year
  Sex: Male

DRUGS (6)
  1. BETASERON [Suspect]
     Indication: SECONDARY PROGRESSIVE MULTIPLE SCLEROSIS
     Dosage: 8 MIU, EVERY 2D, SUBCUTANEOUS
     Route: 058
     Dates: start: 20000306, end: 20050105
  2. DIOVAN HCT (VALSARTAN) [Concomitant]
  3. LIPID LOWERING AGENT [Concomitant]
  4. NORVASC [Concomitant]
  5. GLUCOSAMINE (GLUCOSAMINE) [Concomitant]
  6. IMURAN [Concomitant]

REACTIONS (7)
  - BLOOD CHOLESTEROL INCREASED [None]
  - CEREBRAL ISCHAEMIA [None]
  - CEREBROVASCULAR ACCIDENT [None]
  - EMBOLISM [None]
  - HYPERTENSION [None]
  - HYPOGLYCAEMIA [None]
  - PROSTATIC DISORDER [None]
